FAERS Safety Report 6738367-1 (Version None)
Quarter: 2010Q2

REPORT INFORMATION
  Report Type: 
  Country: None (occurrence: None)
  Receive Date: 20100524
  Receipt Date: 20100511
  Transmission Date: 20101027
  Serious: Yes (Other)
  Sender: FDA-Public Use
  Company Number: US-JNJFOC-20100506612

PATIENT
  Age: 3 Year
  Sex: Female
  Weight: 15.88 kg

DRUGS (3)
  1. CHILDREN'S TYLENOL [Suspect]
     Route: 048
  2. CHILDREN'S TYLENOL [Suspect]
     Indication: PYREXIA
     Dosage: 1 TSP, EVERY 4-6 HOURS
     Route: 048
  3. ANTIBIOTICS [Concomitant]
     Indication: INFECTION
     Route: 065

REACTIONS (2)
  - PRODUCT QUALITY ISSUE [None]
  - PYREXIA [None]
